FAERS Safety Report 13585233 (Version 1)
Quarter: 2017Q2

REPORT INFORMATION
  Report Type: Spontaneous
  Country: US (occurrence: US)
  Receive Date: 20170526
  Receipt Date: 20170526
  Transmission Date: 20170830
  Serious: Yes (Hospitalization)
  Sender: FDA-Public Use
  Company Number: US-PFIZER INC-2017209112

PATIENT
  Age: 74 Year
  Sex: Female

DRUGS (2)
  1. LETROZOLE. [Concomitant]
     Active Substance: LETROZOLE
     Dosage: UNK
  2. IBRANCE [Suspect]
     Active Substance: PALBOCICLIB
     Dosage: 125 MG, CYCLIC (QD X 21D THEN 7D OFF)
     Route: 048
     Dates: start: 20170521

REACTIONS (2)
  - Drug dose omission [Unknown]
  - Chronic obstructive pulmonary disease [Unknown]
